FAERS Safety Report 6772185-3 (Version None)
Quarter: 2010Q2

REPORT INFORMATION
  Report Type: 
  Country: None (occurrence: None)
  Receive Date: 20100616
  Receipt Date: 20100603
  Transmission Date: 20101027
  Serious: Yes (Other)
  Sender: FDA-Public Use
  Company Number: PHHY2010US36638

PATIENT
  Sex: Female
  Weight: 78.912 kg

DRUGS (13)
  1. ZOMETA [Suspect]
     Indication: METASTASES TO BONE
     Dosage: 3 MG, QMO
     Route: 042
     Dates: start: 20061019, end: 20090607
  2. FEMARA [Concomitant]
  3. SPIRONOLACTONE [Concomitant]
  4. LORAZEPAM [Concomitant]
  5. FOLATE [Concomitant]
  6. LASIX [Concomitant]
  7. SEROQUEL [Concomitant]
  8. SYNTHROID [Concomitant]
  9. POTASSIUM CHLORIDE [Concomitant]
  10. ASPIRIN [Concomitant]
  11. LANTUS [Concomitant]
  12. RADIATION THERAPY [Concomitant]
     Indication: METASTASES TO CHEST WALL
     Dosage: UNK
     Dates: start: 20061103, end: 20061128
  13. RADIATION THERAPY [Concomitant]
     Dosage: UNK
     Dates: start: 20070201, end: 20070228

REACTIONS (13)
  - ALOPECIA [None]
  - BONE DISORDER [None]
  - BONE LESION [None]
  - DENTAL CLEANING [None]
  - GINGIVAL ERYTHEMA [None]
  - GINGIVAL INFECTION [None]
  - GINGIVAL PAIN [None]
  - GINGIVAL SWELLING [None]
  - OSTEOMYELITIS [None]
  - OSTEONECROSIS OF JAW [None]
  - PAIN [None]
  - PAIN IN JAW [None]
  - SOFT TISSUE INFECTION [None]
